FAERS Safety Report 9645409 (Version 2)
Quarter: 2013Q4

REPORT INFORMATION
  Report Type: Spontaneous
  Country: IT (occurrence: None)
  Receive Date: 20131023
  Receipt Date: 20131218
  Transmission Date: 20140711
  Serious: Yes (Life-Threatening, Hospitalization)
  Sender: FDA-Public Use
  Company Number: AUR-APL-2013-08813

PATIENT
  Age: 84 Year
  Sex: Female

DRUGS (4)
  1. BISOPROLOL [Suspect]
     Indication: HYPERTENSION
     Dosage: 10 MG, 1 IN 1 D
     Route: 048
     Dates: start: 20120101, end: 20130803
  2. LANOXIN (DIGOXIN) [Suspect]
     Indication: ATRIAL FIBRILLATION
     Dosage: 1 DOSAGE FORMS (1 DOSAGE FORMS, 1 IN 1 D)
     Route: 048
     Dates: start: 20120101, end: 20130803
  3. TAPAZOLE (THIAMAZOLE) [Concomitant]
  4. COUMADIN (WARFARIN SODIUM) [Concomitant]

REACTIONS (4)
  - Atrioventricular block [None]
  - Apparent life threatening event [None]
  - Hyperkalaemia [None]
  - Atrioventricular block complete [None]
